FAERS Safety Report 5381578-0 (Version None)
Quarter: 2007Q2

REPORT INFORMATION
  Report Type: 
  Country: None (occurrence: None)
  Receive Date: 20070629
  Receipt Date: 20070312
  Transmission Date: 20071010
  Serious: Yes (Hospitalization)
  Sender: FDA-Public Use
  Company Number: A03200702388

PATIENT
  Sex: Female

DRUGS (5)
  1. AMBIEN [Suspect]
     Indication: INSOMNIA
     Dosage: 12.5 MG-ORAL
     Route: 048
     Dates: start: 20060724, end: 20060806
  2. AMBIEN [Suspect]
     Indication: INSOMNIA
     Dosage: 6.25 MG HS-ORAL
     Route: 048
     Dates: start: 20060112, end: 20060723
  3. VENLAFAXIINE HCL [Concomitant]
  4. SERTRALINE HYDROCHLORIDE [Concomitant]
  5. MEDROXYPROGESTERONE ACETATE [Concomitant]

REACTIONS (8)
  - AMNESIA [None]
  - EATING DISORDER [None]
  - EXCORIATION [None]
  - LOSS OF CONSCIOUSNESS [None]
  - OVERDOSE [None]
  - SLEEP TALKING [None]
  - SLEEP WALKING [None]
  - SUICIDAL IDEATION [None]
